FAERS Safety Report 10466507 (Version 1)
Quarter: 2014Q3

REPORT INFORMATION
  Report Type: Report from Study
  Country: DE (occurrence: DE)
  Receive Date: 20140922
  Receipt Date: 20140922
  Transmission Date: 20150326
  Serious: Yes (Hospitalization)
  Sender: FDA-Public Use
  Company Number: DE-ROCHE-1465040

PATIENT
  Age: 66 Year
  Sex: Female
  Weight: 90 kg

DRUGS (2)
  1. TRASTUZUMAB [Suspect]
     Active Substance: TRASTUZUMAB
     Indication: HER-2 POSITIVE BREAST CANCER
     Route: 058
     Dates: start: 20140304, end: 20140416
  2. TRASTUZUMAB [Suspect]
     Active Substance: TRASTUZUMAB
     Route: 058
     Dates: start: 20140911

REACTIONS (1)
  - General physical health deterioration [Not Recovered/Not Resolved]

NARRATIVE: CASE EVENT DATE: 20140916
